FAERS Safety Report 8790377 (Version 3)
Quarter: 2013Q1

REPORT INFORMATION
  Report Type: Spontaneous
  Country: US (occurrence: US)
  Receive Date: 20120917
  Receipt Date: 20130328
  Transmission Date: 20140127
  Serious: Yes (Other)
  Sender: FDA-Public Use
  Company Number: US-JNJFOC-20120902902

PATIENT
  Age: 50 None
  Sex: Female
  Weight: 46.72 kg

DRUGS (4)
  1. HALDOL [Suspect]
     Indication: MIGRAINE
     Route: 065
     Dates: start: 20120527, end: 20120527
  2. HALDOL [Suspect]
     Indication: MIGRAINE
     Route: 065
     Dates: start: 20120223, end: 20120223
  3. NAPROXEN [Concomitant]
     Indication: MIGRAINE
     Route: 048
  4. SUMATRIPTAN [Concomitant]
     Indication: MIGRAINE
     Dosage: AS NEEDED
     Route: 048

REACTIONS (14)
  - Hypersensitivity [Recovered/Resolved]
  - Amnesia [Not Recovered/Not Resolved]
  - Parkinson^s disease [Not Recovered/Not Resolved]
  - Convulsion [Recovered/Resolved]
  - Eye movement disorder [Recovered/Resolved]
  - Adverse event [Recovered/Resolved]
  - Feeling abnormal [Recovered/Resolved]
  - Abnormal loss of weight [Not Recovered/Not Resolved]
  - Off label use [Recovered/Resolved]
  - Incorrect route of drug administration [Unknown]
  - Thinking abnormal [Recovered/Resolved]
  - Tremor [Not Recovered/Not Resolved]
  - Restlessness [Recovered/Resolved]
  - Akathisia [Recovered/Resolved]
